FAERS Safety Report 9910094 (Version 1)
Quarter: 2014Q1

REPORT INFORMATION
  Report Type: Spontaneous
  Country: JP (occurrence: JP)
  Receive Date: 20140219
  Receipt Date: 20140219
  Transmission Date: 20141002
  Serious: Yes (Hospitalization)
  Sender: FDA-Public Use
  Company Number: JP-ASTRAZENECA-2014SE10469

PATIENT
  Sex: 0

DRUGS (1)
  1. XYLOCAINE POLYAMP [Suspect]
     Indication: LOCAL ANAESTHESIA
     Dosage: DOSE UNKNOWN
     Route: 053

REACTIONS (2)
  - Oedema [Unknown]
  - Urticaria [Unknown]
